FAERS Safety Report 6535930-8 (Version None)
Quarter: 2010Q1

REPORT INFORMATION
  Report Type: 
  Country: None (occurrence: None)
  Receive Date: 20100113
  Receipt Date: 20100104
  Transmission Date: 20100710
  Serious: Yes (Hospitalization)
  Sender: FDA-Public Use
  Company Number: A0837481A

PATIENT
  Age: 45 Year
  Sex: Female
  Weight: 109.1 kg

DRUGS (1)
  1. AVANDIA [Suspect]
     Indication: TYPE 2 DIABETES MELLITUS
     Dosage: 8MG TWICE PER DAY
     Route: 048
     Dates: start: 20010403, end: 20040601

REACTIONS (7)
  - ANXIETY [None]
  - ARRHYTHMIA [None]
  - CARDIAC DISORDER [None]
  - CHEST PAIN [None]
  - ECONOMIC PROBLEM [None]
  - FATIGUE [None]
  - MYOCARDIAL INFARCTION [None]
